FAERS Safety Report 20910540 (Version 2)
Quarter: 2022Q2

REPORT INFORMATION
  Report Type: Spontaneous
  Country: US (occurrence: US)
  Receive Date: 20220603
  Receipt Date: 20220603
  Transmission Date: 20220720
  Serious: Yes (Other)
  Sender: FDA-Public Use
  Company Number: US-PFIZER INC-202200756647

PATIENT
  Age: 16 Year
  Sex: Male

DRUGS (1)
  1. PENICILLIN G PROCAINE [Suspect]
     Active Substance: PENICILLIN G PROCAINE
     Indication: Gonorrhoea
     Dosage: 480000 IU

REACTIONS (2)
  - Hoigne^s syndrome [Recovered/Resolved]
  - Blood pressure increased [Unknown]
